FAERS Safety Report 13002028 (Version 2)
Quarter: 2016Q4

REPORT INFORMATION
  Report Type: Spontaneous
  Country: US (occurrence: US)
  Receive Date: 20161206
  Receipt Date: 20161221
  Transmission Date: 20170207
  Serious: Yes (Other)
  Sender: FDA-Public Use
  Company Number: US-PFIZER INC-2016555128

PATIENT
  Age: 72 Year
  Sex: Male

DRUGS (4)
  1. TIKOSYN [Suspect]
     Active Substance: DOFETILIDE
     Indication: ATRIAL FIBRILLATION
     Dosage: UNK
  2. NORTHERA [Interacting]
     Active Substance: DROXIDOPA
     Dosage: 100 MG, UNK
     Dates: start: 20161103
  3. NORTHERA [Interacting]
     Active Substance: DROXIDOPA
     Dosage: 300 MG, UNK
  4. NORTHERA [Interacting]
     Active Substance: DROXIDOPA
     Dosage: 200 MG, UNK

REACTIONS (4)
  - Drug interaction [Unknown]
  - Arrhythmia [Not Recovered/Not Resolved]
  - Condition aggravated [Unknown]
  - Dizziness [Unknown]
